FAERS Safety Report 21179488 (Version 3)
Quarter: 2024Q1

REPORT INFORMATION
  Report Type: Report from Study
  Country: JP (occurrence: JP)
  Receive Date: 20220805
  Receipt Date: 20240213
  Transmission Date: 20240410
  Serious: Yes (Other)
  Sender: FDA-Public Use
  Company Number: JP-Merck Healthcare KGaA-9231468

PATIENT
  Age: 82 Year
  Sex: Female
  Weight: 46 kg

DRUGS (11)
  1. BAVENCIO [Suspect]
     Active Substance: AVELUMAB
     Indication: Metastatic renal cell carcinoma
     Route: 041
     Dates: start: 20210302
  2. BAVENCIO [Suspect]
     Active Substance: AVELUMAB
     Route: 041
     Dates: start: 20210316
  3. BAVENCIO [Suspect]
     Active Substance: AVELUMAB
     Route: 042
     Dates: start: 20210526
  4. AXITINIB [Suspect]
     Active Substance: AXITINIB
     Indication: Metastatic renal cell carcinoma
     Route: 048
     Dates: start: 20210302, end: 20210305
  5. AXITINIB [Suspect]
     Active Substance: AXITINIB
     Route: 048
     Dates: start: 20210316, end: 20210330
  6. AXITINIB [Suspect]
     Active Substance: AXITINIB
     Route: 048
     Dates: start: 20210420, end: 20210422
  7. AXITINIB [Suspect]
     Active Substance: AXITINIB
     Route: 048
     Dates: start: 20210426
  8. ACETAMINOPHEN [Concomitant]
     Active Substance: ACETAMINOPHEN
     Indication: Premedication
     Route: 048
     Dates: start: 20210302, end: 20210512
  9. ACETAMINOPHEN [Concomitant]
     Active Substance: ACETAMINOPHEN
     Route: 048
     Dates: start: 20210526, end: 20220308
  10. DIPHENHYDRAMINE [Concomitant]
     Active Substance: DIPHENHYDRAMINE
     Indication: Premedication
     Dates: start: 20210302, end: 20210512
  11. DIPHENHYDRAMINE [Concomitant]
     Active Substance: DIPHENHYDRAMINE
     Route: 048
     Dates: start: 20210526, end: 20220308

REACTIONS (4)
  - Scleroderma [Recovering/Resolving]
  - Neuropathy peripheral [Recovering/Resolving]
  - Hepatic function abnormal [Recovered/Resolved]
  - Hypertension [Recovering/Resolving]

NARRATIVE: CASE EVENT DATE: 20210305
